FAERS Safety Report 9266520 (Version 2)
Quarter: 2013Q2

REPORT INFORMATION
  Report Type: Report from Study
  Country: US (occurrence: US)
  Receive Date: 20130502
  Receipt Date: 20130521
  Transmission Date: 20140414
  Serious: Yes (Other)
  Sender: FDA-Public Use
  Company Number: US-MILLENNIUM PHARMACEUTICALS, INC.-2013-03076

PATIENT
  Age: 54 Year
  Sex: Female
  Weight: 86.4 kg

DRUGS (3)
  1. VELCADE [Suspect]
     Indication: PLASMA CELL MYELOMA
     Dosage: 3 MG, UNK
     Route: 042
     Dates: start: 20111126, end: 20111126
  2. MELPHALAN [Suspect]
     Indication: PLASMA CELL MYELOMA
     Dosage: 160 MG, QD
     Route: 042
     Dates: start: 20111125, end: 20111126
  3. FLUDARABINE [Suspect]
     Indication: PLASMA CELL MYELOMA
     Dosage: 70 MG, UNK
     Route: 042
     Dates: start: 20111123, end: 20111126

REACTIONS (1)
  - Malignant melanoma in situ [Not Recovered/Not Resolved]
